FAERS Safety Report 16103862 (Version 1)
Quarter: 2019Q1

REPORT INFORMATION
  Report Type: Spontaneous
  Country: US (occurrence: US)
  Receive Date: 20190322
  Receipt Date: 20190322
  Transmission Date: 20190418
  Serious: No
  Sender: FDA-Public Use
  Company Number: US-HIKMA PHARMACEUTICALS USA INC.-US-H14001-18-00974

PATIENT
  Age: 17 Year
  Sex: Male

DRUGS (3)
  1. FLUTICASONE. [Suspect]
     Active Substance: FLUTICASONE
     Route: 065
     Dates: start: 201711, end: 20180122
  2. FLUTICASONE. [Suspect]
     Active Substance: FLUTICASONE
     Indication: RHINITIS
     Route: 065
     Dates: start: 201704, end: 201711
  3. FLUTICASONE. [Suspect]
     Active Substance: FLUTICASONE
     Route: 045
     Dates: start: 20180122

REACTIONS (1)
  - Inappropriate schedule of product administration [Unknown]
